FAERS Safety Report 7041520-3 (Version None)
Quarter: 2010Q4

REPORT INFORMATION
  Report Type: 
  Country: None (occurrence: None)
  Receive Date: 20101013
  Receipt Date: 20100629
  Transmission Date: 20110411
  Serious: Yes (Disabling)
  Sender: FDA-Public Use
  Company Number: US-ASTRAZENECA-2010SE18375

PATIENT
  Age: 92 Year
  Sex: Female
  Weight: 58.1 kg

DRUGS (18)
  1. SYMBICORT [Suspect]
     Indication: CHRONIC OBSTRUCTIVE PULMONARY DISEASE
     Dosage: 160/4.5, TOTAL DAILY DOSE: 640 UG
     Route: 055
     Dates: start: 20100301
  2. SYMBICORT [Suspect]
     Route: 055
     Dates: start: 20100601
  3. BENICAR [Concomitant]
     Indication: HYPERTENSION
  4. BENICAR [Concomitant]
  5. PREVACID [Concomitant]
  6. AMLODIPINE [Concomitant]
     Indication: HYPERTENSION
  7. CALCIUM [Concomitant]
  8. VITAMIN D [Concomitant]
     Dosage: 1200 DAILY
  9. MULTI-VITAMINS [Concomitant]
     Dosage: DAILY
  10. SPIRIVA [Concomitant]
     Indication: CHRONIC OBSTRUCTIVE PULMONARY DISEASE
  11. ASPIRIN [Concomitant]
  12. PATANASE [Concomitant]
     Dosage: DAILY
  13. LEVALBUTEROL HCL [Concomitant]
     Dosage: 1 PUFF Q. 6 HOURS
     Route: 055
  14. SEREVENT [Concomitant]
     Indication: CHRONIC OBSTRUCTIVE PULMONARY DISEASE
     Route: 055
  15. ALVESCO [Concomitant]
     Indication: CHRONIC OBSTRUCTIVE PULMONARY DISEASE
  16. ATROVENT [Concomitant]
     Dosage: DAILY
  17. SENNA [Concomitant]
     Indication: CONSTIPATION
  18. PRUNE JUICE [Concomitant]
     Indication: CONSTIPATION

REACTIONS (6)
  - ASTHENIA [None]
  - BACK PAIN [None]
  - HYPOAESTHESIA [None]
  - INSOMNIA [None]
  - MUSCLE SPASMS [None]
  - MUSCLE TWITCHING [None]
